FAERS Safety Report 20852395 (Version 2)
Quarter: 2022Q2

REPORT INFORMATION
  Report Type: Spontaneous
  Country: US (occurrence: US)
  Receive Date: 20220520
  Receipt Date: 20220624
  Transmission Date: 20220720
  Serious: No
  Sender: FDA-Public Use
  Company Number: US-PFIZER INC-202200629103

PATIENT
  Age: 11 Year
  Sex: Female
  Weight: 21.77 kg

DRUGS (1)
  1. GENOTROPIN [Suspect]
     Active Substance: SOMATROPIN
     Indication: Short stature
     Dosage: 1 MG, 1X/DAY (THE WHOLE THING IS 12MG, CALLER STATES, SHE BELIEVES IT IS 1MG, ONCE A DAY)

REACTIONS (4)
  - Poor quality product administered [Unknown]
  - Device leakage [Unknown]
  - Incorrect dose administered [Unknown]
  - Wrong technique in device usage process [Unknown]
